FAERS Safety Report 26211886 (Version 1)
Quarter: 2025Q4

REPORT INFORMATION
  Report Type: Spontaneous
  Country: US (occurrence: US)
  Receive Date: 20251230
  Receipt Date: 20251230
  Transmission Date: 20260118
  Serious: Yes (Hospitalization)
  Sender: CATALYST PHARMA
  Company Number: CATA2502658

PATIENT
  Age: 3 Year
  Sex: Male
  Weight: 17.234 kg

DRUGS (3)
  1. AGAMREE [Suspect]
     Active Substance: VAMOROLONE
     Indication: Duchenne muscular dystrophy
     Dosage: 2.3 ML DAILY
     Route: 048
     Dates: start: 20240730
  2. AGAMREE [Suspect]
     Active Substance: VAMOROLONE
     Dosage: 2.6 ML DAILY
     Route: 048
     Dates: start: 20250904
  3. CETIRIZINE [Concomitant]
     Active Substance: CETIRIZINE HYDROCHLORIDE
     Indication: Hypersensitivity
     Dosage: 2.5 ML DAILY
     Route: 048

REACTIONS (1)
  - Tonsillectomy [Recovered/Resolved]

NARRATIVE: CASE EVENT DATE: 20251208
